FAERS Safety Report 9311038 (Version 1)
Quarter: 2013Q2

REPORT INFORMATION
  Report Type: Spontaneous
  Country: US (occurrence: None)
  Receive Date: 20130523
  Receipt Date: 20130523
  Transmission Date: 20140414
  Serious: Yes (Hospitalization)
  Sender: FDA-Public Use
  Company Number: None

PATIENT
  Age: 64 Year
  Sex: Female
  Weight: 63 kg

DRUGS (2)
  1. MAXZIDE [Suspect]
     Dosage: 24 HOURS
     Route: 048
     Dates: start: 20120301, end: 20130404
  2. ZETIA [Suspect]
     Dosage: 24 HOURS
     Route: 048
     Dates: start: 20120304, end: 20130404

REACTIONS (1)
  - Pancreatitis [None]
